FAERS Safety Report 9073322 (Version 1)
Quarter: 2013Q1

REPORT INFORMATION
  Report Type: Report from Study
  Country: US (occurrence: US)
  Receive Date: 20130128
  Receipt Date: 20130128
  Transmission Date: 20140127
  Serious: Yes (Hospitalization, Other)
  Sender: FDA-Public Use
  Company Number: US-ABBOTT-12P-163-0902674-00

PATIENT
  Age: 17 None
  Sex: Female
  Weight: 63.56 kg

DRUGS (5)
  1. HUMIRA 40 MG/0.8 ML PEN [Suspect]
     Indication: CROHN^S DISEASE
     Route: 058
     Dates: start: 20120112, end: 20120112
  2. HUMIRA 40 MG/0.8 ML PEN [Suspect]
     Route: 058
     Dates: start: 20120113, end: 20120113
  3. NECON [Concomitant]
     Indication: CONTRACEPTION
  4. HYDROCODONE [Concomitant]
     Indication: ABDOMINAL PAIN UPPER
     Dosage: 5/500MG EVERY 4-6 HOURS PRN
  5. PROMETHAZINE [Concomitant]
     Indication: NAUSEA
     Dosage: Q6HRS AS NEEDED

REACTIONS (3)
  - Abdominal pain [Recovering/Resolving]
  - Crohn^s disease [Recovering/Resolving]
  - Cholelithiasis [Recovered/Resolved]
